FAERS Safety Report 15768003 (Version 2)
Quarter: 2019Q1

REPORT INFORMATION
  Report Type: Spontaneous
  Country: PL (occurrence: PL)
  Receive Date: 20181227
  Receipt Date: 20190108
  Transmission Date: 20190417
  Serious: Yes (Hospitalization)
  Sender: FDA-Public Use
  Company Number: PL-PROMETHEUS LABORATORIES-2018PL000030

PATIENT
  Age: 72 Year
  Sex: Male

DRUGS (7)
  1. PROLEUKIN [Suspect]
     Active Substance: ALDESLEUKIN
     Dosage: UNK
     Route: 042
     Dates: start: 20180502
  2. NIVOLUMAB [Suspect]
     Active Substance: NIVOLUMAB
     Indication: NON-SMALL CELL LUNG CANCER
     Dosage: 360 MILLIGRAM, EVERY 3 WEEKS
     Dates: start: 20180219, end: 20180403
  3. PROLEUKIN [Suspect]
     Active Substance: ALDESLEUKIN
     Indication: NON-SMALL CELL LUNG CANCER
     Dosage: 0.006 MICROGRAM/KILOGRAM, EVERY 3 WEEKS
     Route: 042
     Dates: start: 20180216, end: 20180403
  4. VALSARTAN. [Concomitant]
     Active Substance: VALSARTAN
  5. PROPRANOLOL [Concomitant]
     Active Substance: PROPRANOLOL HYDROCHLORIDE
  6. THYROZOL [Suspect]
     Active Substance: METHIMAZOLE
     Indication: PRODUCT USED FOR UNKNOWN INDICATION
     Dosage: UNK UNKNOWN
     Route: 065
  7. NIVOLUMAB [Suspect]
     Active Substance: NIVOLUMAB
     Dosage: 360 UNK
     Route: 042
     Dates: start: 20180502

REACTIONS (2)
  - Alanine aminotransferase increased [Recovered/Resolved]
  - Aspartate aminotransferase increased [Recovered/Resolved]

NARRATIVE: CASE EVENT DATE: 20180410
